FAERS Safety Report 10391245 (Version 3)
Quarter: 2015Q1

REPORT INFORMATION
  Report Type: Report from Study
  Country: US (occurrence: US)
  Receive Date: 20140818
  Receipt Date: 20150305
  Transmission Date: 20150720
  Serious: Yes (Hospitalization, Other)
  Sender: FDA-Public Use
  Company Number: US-ABBVIE-14P-163-1271663-00

PATIENT
  Sex: Male
  Weight: 86.26 kg

DRUGS (4)
  1. ALCOHOL. [Suspect]
     Active Substance: ALCOHOL
     Indication: PRODUCT USED FOR UNKNOWN INDICATION
     Route: 065
  2. HEPATITIS VACCINES [Concomitant]
     Active Substance: UNSPECIFIED INGREDIENT
     Indication: PRODUCT USED FOR UNKNOWN INDICATION
     Dates: start: 20150224, end: 20150224
  3. HUMIRA [Suspect]
     Active Substance: ADALIMUMAB
     Indication: PSORIASIS
     Route: 058
     Dates: start: 2013, end: 2013
  4. HUMIRA [Suspect]
     Active Substance: ADALIMUMAB
     Dosage: ONE WEEK AFTER 80 MG DOSE
     Route: 058
     Dates: start: 2013, end: 201406

REACTIONS (9)
  - Facial bones fracture [Recovering/Resolving]
  - Scar [Not Recovered/Not Resolved]
  - Multiple injuries [Recovering/Resolving]
  - Aggression [Recovered/Resolved]
  - Splenic rupture [Unknown]
  - Paranoia [Recovered/Resolved]
  - Amnesia [Not Recovered/Not Resolved]
  - Fall [Recovered/Resolved]
  - Rib fracture [Recovering/Resolving]

NARRATIVE: CASE EVENT DATE: 2014
